FAERS Safety Report 6957006-8 (Version None)
Quarter: 2010Q3

REPORT INFORMATION
  Report Type: 
  Country: None (occurrence: None)
  Receive Date: 20100827
  Receipt Date: 20100827
  Transmission Date: 20110219
  Serious: No
  Sender: FDA-Public Use
  Company Number: None

PATIENT
  Sex: Female
  Weight: 106.6 kg

DRUGS (3)
  1. VENLAFAXINE HCL EXTENDED-RELEASE [Suspect]
     Indication: DEPRESSION
     Dosage: 150MG DAILY PO, 75MG DAILY PO
     Route: 048
     Dates: start: 20100730, end: 20100826
  2. VENLAFAXINE HCL EXTENDED-RELEASE [Suspect]
     Indication: SOCIAL PHOBIA
     Dosage: 150MG DAILY PO, 75MG DAILY PO
     Route: 048
     Dates: start: 20100730, end: 20100826
  3. LORAZEPAM [Concomitant]

REACTIONS (4)
  - ANXIETY [None]
  - DEPRESSION [None]
  - INSOMNIA [None]
  - PRODUCT SUBSTITUTION ISSUE [None]
